FAERS Safety Report 11180803 (Version 2)
Quarter: 2015Q2

REPORT INFORMATION
  Report Type: Spontaneous
  Country: SE (occurrence: SE)
  Receive Date: 20150611
  Receipt Date: 20150630
  Transmission Date: 20150821
  Serious: Yes (Other)
  Sender: FDA-Public Use
  Company Number: SE-ACTAVIS-2015-11309

PATIENT
  Sex: Female

DRUGS (2)
  1. ANTABUSE [Suspect]
     Active Substance: DISULFIRAM
     Indication: ALCOHOL ABUSE
     Dosage: 200 MG, 3/WEEK
     Route: 065
     Dates: start: 201504
  2. ANTABUSE [Suspect]
     Active Substance: DISULFIRAM
     Dosage: 200 MG, 3/WEEK
     Route: 065
     Dates: start: 201306, end: 201312

REACTIONS (2)
  - Renal failure [Not Recovered/Not Resolved]
  - Hepatic enzyme increased [Not Recovered/Not Resolved]
